FAERS Safety Report 22399886 (Version 1)
Quarter: 2023Q2

REPORT INFORMATION
  Report Type: Spontaneous
  Country: GB (occurrence: GB)
  Receive Date: 20230602
  Receipt Date: 20230602
  Transmission Date: 20230721
  Serious: Yes (Other)
  Sender: FDA-Public Use
  Company Number: GB-MHRA-MED-202305221151247610-CBHTD

PATIENT
  Age: 59 Year
  Sex: Female

DRUGS (7)
  1. AMLODIPINE [Suspect]
     Active Substance: AMLODIPINE BESYLATE
     Indication: Hypertension
     Dosage: 10 MILLIGRAM DAILY;
     Route: 065
     Dates: start: 20230427, end: 20230522
  2. HYDROXOCOBALAMIN [Concomitant]
     Active Substance: HYDROXOCOBALAMIN
     Indication: Pernicious anaemia
     Dates: start: 20120401
  3. LEVOTHYROXINE SODIUM ANHYDROUS [Concomitant]
     Active Substance: LEVOTHYROXINE SODIUM ANHYDROUS
     Indication: Autoimmune thyroiditis
     Dates: start: 20090201
  4. MORNINGSIDE HEALTHCARE LIOTHYRONINE [Concomitant]
     Indication: Autoimmune thyroiditis
     Dates: start: 20211001
  5. ESTRADIOL [Concomitant]
     Active Substance: ESTRADIOL
     Indication: Hormone replacement therapy
     Dates: start: 20230321
  6. FERROUS FUMARATE [Concomitant]
     Active Substance: FERROUS FUMARATE
     Indication: Iron deficiency anaemia
     Dates: start: 20210801
  7. VAGIFEM [Concomitant]
     Active Substance: ESTRADIOL
     Indication: Hormone replacement therapy
     Dates: start: 20230321

REACTIONS (3)
  - Oesophageal pain [Not Recovered/Not Resolved]
  - Dyspepsia [Unknown]
  - Product packaging issue [Unknown]

NARRATIVE: CASE EVENT DATE: 20230427
